FAERS Safety Report 6101198-X (Version None)
Quarter: 2009Q1

REPORT INFORMATION
  Report Type: 
  Country: None (occurrence: None)
  Receive Date: 20090223
  Receipt Date: 20090210
  Transmission Date: 20090719
  Serious: Yes (Hospitalization)
  Sender: FDA-Public Use
  Company Number: AEUSA200800269

PATIENT
  Age: 30 Year
  Sex: Female

DRUGS (18)
  1. GAMUNEX [Suspect]
     Indication: HYPOGAMMAGLOBULINAEMIA
     Dosage: 10 GM, QW, IV
     Route: 042
     Dates: start: 20080917
  2. GAMUNEX [Suspect]
     Indication: IMMUNODEFICIENCY COMMON VARIABLE
     Dosage: 10 GM, QW, IV
     Route: 042
     Dates: start: 20080917
  3. FENTANYL [Concomitant]
  4. PROMETHAZINE [Concomitant]
  5. ZOLPIDEM [Concomitant]
  6. MILK OF MAGNESIA [Concomitant]
  7. PANTOPRAZOLE [Concomitant]
  8. DIPHENHYDRAMINE HCL [Concomitant]
  9. HEPARIN [Concomitant]
  10. METOPROLOL TARTRATE [Concomitant]
  11. CLONAZEPAM [Concomitant]
  12. HYDROMORPHONE HCL [Concomitant]
  13. LOVENOX [Concomitant]
  14. KLONOPIN [Concomitant]
  15. COUMADIN [Concomitant]
  16. TYLENOL [Concomitant]
  17. DILAUDID [Concomitant]
  18. ATARAX [Concomitant]

REACTIONS (23)
  - ASTHENIA [None]
  - BACTERIAL CULTURE POSITIVE [None]
  - BLOOD CULTURE POSITIVE [None]
  - BLOOD PRESSURE SYSTOLIC INCREASED [None]
  - BORDETELLA INFECTION [None]
  - CATHETER RELATED INFECTION [None]
  - CATHETER THROMBOSIS [None]
  - CHEST PAIN [None]
  - COUGH [None]
  - DEVICE MALFUNCTION [None]
  - DIZZINESS [None]
  - DYSPNOEA EXERTIONAL [None]
  - INCREASED APPETITE [None]
  - LYMPHOCYTE COUNT DECREASED [None]
  - NAUSEA [None]
  - NEUTROPHIL COUNT INCREASED [None]
  - OROPHARYNGEAL PAIN [None]
  - PAIN [None]
  - SEPSIS [None]
  - SINUS HEADACHE [None]
  - SUPERIOR VENA CAVAL OCCLUSION [None]
  - VENA CAVA THROMBOSIS [None]
  - VOMITING [None]
